FAERS Safety Report 8082304-7 (Version None)
Quarter: 2012Q1

REPORT INFORMATION
  Report Type: 
  Country: None (occurrence: None)
  Receive Date: 20120127
  Receipt Date: 20110211
  Transmission Date: 20120608
  Serious: No
  Sender: FDA-Public Use
  Company Number: US-ABBOTT-11P-163-0705460-00

PATIENT
  Sex: Female
  Weight: 53.572 kg

DRUGS (8)
  1. NORCO [Concomitant]
     Indication: PRODUCT USED FOR UNKNOWN INDICATION
  2. BUPROPION HCL [Concomitant]
     Indication: PRODUCT USED FOR UNKNOWN INDICATION
  3. HUMIRA [Suspect]
     Indication: CROHN'S DISEASE
     Route: 058
     Dates: start: 20100101, end: 20110101
  4. HUMIRA [Suspect]
     Indication: BLISTER
  5. LEXAPRO [Concomitant]
     Indication: PRODUCT USED FOR UNKNOWN INDICATION
  6. CLONAZEPAM [Concomitant]
     Indication: PRODUCT USED FOR UNKNOWN INDICATION
  7. SELMA [Concomitant]
     Indication: PRODUCT USED FOR UNKNOWN INDICATION
  8. AZATHIOPRINE [Concomitant]
     Indication: CROHN'S DISEASE

REACTIONS (7)
  - SNEEZING [None]
  - NASAL CONGESTION [None]
  - RHINORRHOEA [None]
  - HOT FLUSH [None]
  - NASOPHARYNGITIS [None]
  - BLOOD POTASSIUM DECREASED [None]
  - PYREXIA [None]
